FAERS Safety Report 14563621 (Version 1)
Quarter: 2018Q1

REPORT INFORMATION
  Report Type: Spontaneous
  Country: US (occurrence: US)
  Receive Date: 20180222
  Receipt Date: 20180222
  Transmission Date: 20180509
  Serious: No
  Sender: FDA-Public Use
  Company Number: US-AMNEAL PHARMACEUTICALS-2017AMN00999

PATIENT
  Age: 75 Year
  Sex: Male

DRUGS (9)
  1. METFORMIN HYDROCHLORIDE. [Suspect]
     Active Substance: METFORMIN HYDROCHLORIDE
     Indication: TYPE 2 DIABETES MELLITUS
     Dosage: UNK
     Dates: start: 20170920
  2. LANTIS INSULIN [Concomitant]
     Indication: DIABETES MELLITUS
  3. TAMSULOSIN [Concomitant]
     Active Substance: TAMSULOSIN
  4. ASPIRIN. [Concomitant]
     Active Substance: ASPIRIN
  5. ATORASTATIN [Concomitant]
  6. ZOLPIDEM [Concomitant]
     Active Substance: ZOLPIDEM\ZOLPIDEM TARTRATE
  7. CLOPIDOGREL [Concomitant]
     Active Substance: CLOPIDOGREL BISULFATE
  8. IRBESARTAN. [Concomitant]
     Active Substance: IRBESARTAN
  9. PANTOPRAZOLE [Concomitant]
     Active Substance: PANTOPRAZOLE

REACTIONS (4)
  - Product solubility abnormal [Not Recovered/Not Resolved]
  - Condition aggravated [Not Recovered/Not Resolved]
  - Medication residue present [Not Recovered/Not Resolved]
  - Drug ineffective [Not Recovered/Not Resolved]

NARRATIVE: CASE EVENT DATE: 201710
